FAERS Safety Report 13834525 (Version 5)
Quarter: 2018Q1

REPORT INFORMATION
  Report Type: Report from Study
  Country: PL (occurrence: PL)
  Receive Date: 20170804
  Receipt Date: 20180307
  Transmission Date: 20180508
  Serious: Yes (Death, Hospitalization)
  Sender: FDA-Public Use
  Company Number: PL-ROCHE-1940908

PATIENT
  Age: 62 Year
  Sex: Female

DRUGS (23)
  1. DEXAFREE [Concomitant]
     Active Substance: DEXAMETHASONE SODIUM PHOSPHATE
     Indication: OPHTHALMIC HERPES ZOSTER
     Route: 065
     Dates: start: 20170207, end: 20170218
  2. CORNEREGEL [Concomitant]
     Active Substance: DEXPANTHENOL
     Indication: OPHTHALMIC HERPES ZOSTER
     Route: 065
     Dates: start: 20170207, end: 20170218
  3. VENETOCLAX. [Suspect]
     Active Substance: VENETOCLAX
     Route: 048
     Dates: start: 20150713, end: 20150719
  4. PARACETAMOL [Concomitant]
     Active Substance: ACETAMINOPHEN
     Indication: PREMEDICATION
     Route: 065
     Dates: start: 20150907, end: 20150907
  5. PARACETAMOL [Concomitant]
     Active Substance: ACETAMINOPHEN
     Route: 065
     Dates: start: 20151228, end: 20151228
  6. SOBYCOR [Concomitant]
     Active Substance: BISOPROLOL FUMARATE
     Route: 065
     Dates: start: 20150725
  7. PARACETAMOL [Concomitant]
     Active Substance: ACETAMINOPHEN
     Route: 065
     Dates: start: 20151102, end: 20151102
  8. PARACETAMOL [Concomitant]
     Active Substance: ACETAMINOPHEN
     Indication: OPHTHALMIC HERPES ZOSTER
     Route: 065
     Dates: start: 20151005, end: 20151005
  9. PARACETAMOL [Concomitant]
     Active Substance: ACETAMINOPHEN
     Route: 065
     Dates: start: 20150810, end: 20150810
  10. VENETOCLAX. [Suspect]
     Active Substance: VENETOCLAX
     Route: 048
     Dates: start: 20150706, end: 20150712
  11. RITUXIMAB. [Suspect]
     Active Substance: RITUXIMAB
     Route: 042
     Dates: start: 20170525, end: 20170525
  12. PARACETAMOL [Concomitant]
     Active Substance: ACETAMINOPHEN
     Route: 065
     Dates: start: 20151130, end: 20151130
  13. HEVIRAN [Concomitant]
     Active Substance: ACYCLOVIR
     Indication: HERPES ZOSTER
     Route: 065
     Dates: start: 20160808, end: 20170627
  14. VENETOCLAX. [Suspect]
     Active Substance: VENETOCLAX
     Indication: CHRONIC LYMPHOCYTIC LEUKAEMIA
     Dosage: THERAPY DURATION- 6 DAYS.
     Route: 048
     Dates: start: 20150624, end: 20150630
  15. VENETOCLAX. [Suspect]
     Active Substance: VENETOCLAX
     Route: 048
     Dates: start: 20150720, end: 20150726
  16. RITUXIMAB. [Suspect]
     Active Substance: RITUXIMAB
     Indication: CHRONIC LYMPHOCYTIC LEUKAEMIA
     Dosage: ON DAY 1 OF CYCLE 1
     Route: 042
     Dates: start: 20150810, end: 20150810
  17. RITUXIMAB. [Suspect]
     Active Substance: RITUXIMAB
     Dosage: ON DAY 1 OF CYCLES 2 TO 6.
     Route: 042
     Dates: start: 20150907, end: 20151228
  18. PARACETAMOL [Concomitant]
     Active Substance: ACETAMINOPHEN
     Route: 065
     Dates: start: 20160808, end: 20170627
  19. VENETOCLAX. [Suspect]
     Active Substance: VENETOCLAX
     Route: 048
     Dates: start: 20150727, end: 20150802
  20. VENETOCLAX. [Suspect]
     Active Substance: VENETOCLAX
     Dosage: MOST RECENT DOSE PRIOR TO EVENT ON 25/APR/2017.
     Route: 048
     Dates: start: 20150803, end: 20170426
  21. HEVIRAN [Concomitant]
     Active Substance: ACYCLOVIR
     Indication: INFECTION PROPHYLAXIS
     Route: 065
     Dates: start: 20150624, end: 20160321
  22. SULFACETAMID [Concomitant]
     Indication: HERPES ZOSTER
     Route: 065
     Dates: start: 20160808, end: 20170627
  23. DICORTINEF [Concomitant]
     Indication: HERPES ZOSTER
     Route: 065
     Dates: start: 20160808, end: 20170627

REACTIONS (2)
  - Thrombocytopenia [Fatal]
  - Pneumonia [Fatal]

NARRATIVE: CASE EVENT DATE: 20170426
